FAERS Safety Report 14485648 (Version 1)
Quarter: 2018Q1

REPORT INFORMATION
  Report Type: Spontaneous
  Country: US (occurrence: US)
  Receive Date: 20180205
  Receipt Date: 20180205
  Transmission Date: 20180509
  Serious: Yes (Hospitalization)
  Sender: FDA-Public Use
  Company Number: US-CELGENEUS-USA-20180200444

PATIENT
  Sex: Male

DRUGS (3)
  1. THALOMID [Suspect]
     Active Substance: THALIDOMIDE
     Indication: ILL-DEFINED DISORDER
     Dosage: 50 MILLIGRAM
     Route: 048
     Dates: start: 200902
  2. THALOMID [Suspect]
     Active Substance: THALIDOMIDE
     Dosage: 100 MILLIGRAM
     Route: 048
     Dates: start: 201611
  3. THALOMID [Suspect]
     Active Substance: THALIDOMIDE
     Indication: PLASMA CELL MYELOMA
     Dosage: 100-200MG
     Route: 048
     Dates: start: 20091113

REACTIONS (1)
  - Pneumonia [Unknown]
